FAERS Safety Report 9846813 (Version 1)
Quarter: 2013Q4

REPORT INFORMATION
  Report Type: Spontaneous
  Country: US (occurrence: None)
  Receive Date: 20131219
  Receipt Date: 20131219
  Transmission Date: 20140711
  Serious: Yes (Hospitalization)
  Sender: FDA-Public Use
  Company Number: 163-20785-13073632

PATIENT
  Age: 63 Year
  Sex: Male

DRUGS (7)
  1. THALOMID (THALIDOMIDE) (100 MILLIGRAM, CAPSULES) [Suspect]
     Indication: PLASMA CELL MYELOMA
     Dosage: 100 MG , 1 IN 1 D, PO 12JUN2013 - 15JUN2013 THERAPY DATES
     Route: 048
     Dates: start: 20130612, end: 20130615
  2. DECADRON (DEXAMETHASONE) (TABLETS) [Concomitant]
  3. BENADRYL (CLONALIN) (CAPSULES) [Concomitant]
  4. RENVELA (SEVELAMER) [Concomitant]
  5. VELCADE (BORTEZOMIB) (TABLETS) [Concomitant]
  6. RENATABS (RENATABS) (UNKNOWN) [Concomitant]
  7. SODIUM BICARBONATE (SODIUM BICARBONATE) (UNKNOWN) [Concomitant]

REACTIONS (1)
  - Pneumonia [None]
